FAERS Safety Report 7381735-8 (Version None)
Quarter: 2011Q1

REPORT INFORMATION
  Report Type: 
  Country: None (occurrence: None)
  Receive Date: 20110329
  Receipt Date: 20110305
  Transmission Date: 20110831
  Serious: No
  Sender: FDA-Public Use
  Company Number: US-B.I. PHARMACEUTICALS,INC./RIDGEFIELD-2011-BP-07270BP

PATIENT
  Sex: Male

DRUGS (8)
  1. OMEPRAZOLE [Concomitant]
     Indication: HYPERCHLORHYDRIA
  2. CARBIDOPA LEVIDOPA [Concomitant]
     Indication: PARKINSON'S DISEASE
  3. ENABLEX [Concomitant]
  4. PROSCAR [Concomitant]
     Indication: PROSTATOMEGALY
  5. PRADAXA [Suspect]
     Indication: ATRIAL FIBRILLATION
     Dates: start: 20110101
  6. FLOMAX [Suspect]
     Indication: BENIGN PROSTATIC HYPERPLASIA
     Dosage: 0.4 MG
     Route: 048
  7. ZOCOR [Concomitant]
     Indication: BLOOD CHOLESTEROL
  8. PROSCAR [Concomitant]
     Indication: BLADDER DISORDER

REACTIONS (5)
  - FLATULENCE [None]
  - RECTAL HAEMORRHAGE [None]
  - RECTAL DISCHARGE [None]
  - ABDOMINAL PAIN UPPER [None]
  - DIARRHOEA [None]
